FAERS Safety Report 5010640-7 (Version None)
Quarter: 2006Q2

REPORT INFORMATION
  Report Type: 
  Country: None (occurrence: None)
  Receive Date: 20060525
  Receipt Date: 20060502
  Transmission Date: 20061013
  Serious: Yes (Hospitalization, Other)
  Sender: FDA-Public Use
  Company Number: FR-BRISTOL-MYERS SQUIBB COMPANY-13366232

PATIENT
  Age: 64 Year
  Sex: Female

DRUGS (6)
  1. VASTEN TABS 20 MG [Suspect]
     Route: 048
     Dates: end: 20060322
  2. EUCALCIC [Suspect]
     Route: 048
     Dates: end: 20060322
  3. HYPERIUM [Suspect]
     Route: 048
     Dates: end: 20060322
  4. DEPAKENE [Suspect]
     Route: 048
     Dates: end: 20060324
  5. STILNOX [Suspect]
     Route: 048
     Dates: end: 20060322
  6. KAYEXALATE [Suspect]
     Route: 048
     Dates: end: 20060322

REACTIONS (6)
  - DEHYDRATION [None]
  - DIARRHOEA [None]
  - GENERAL PHYSICAL HEALTH DETERIORATION [None]
  - HYPERTENSION [None]
  - PANCREATITIS [None]
  - WEIGHT DECREASED [None]
